FAERS Safety Report 8793828 (Version 1)
Quarter: 2012Q4

REPORT INFORMATION
  Report Type: 
  Country: US (occurrence: US)
  Receive Date: 20120918
  Receipt Date: 20120918
  Transmission Date: 20130627
  Serious: No
  Sender: FDA-Public Use
  Company Number: US-009507513-1209USA001413

PATIENT

DRUGS (3)
  1. ASMANEX TWISTHALER [Suspect]
     Indication: ASTHMA
     Dosage: 1 DF, bid
     Dates: start: 201008
  2. SINGULAIR [Concomitant]
  3. OMNARIS [Concomitant]

REACTIONS (2)
  - Asthma [Not Recovered/Not Resolved]
  - Incorrect dose administered [Unknown]
